FAERS Safety Report 25778570 (Version 1)
Quarter: 2025Q3

REPORT INFORMATION
  Report Type: Other
  Country: JP (occurrence: JP)
  Receive Date: 20250909
  Receipt Date: 20250909
  Transmission Date: 20251021
  Serious: Yes (Hospitalization, Other)
  Sender: ANI
  Company Number: JP-ANIPHARMA-030481

PATIENT
  Age: 50 Year
  Sex: Female

DRUGS (10)
  1. HYDROCORTISONE [Suspect]
     Active Substance: HYDROCORTISONE
     Indication: Steroid withdrawal syndrome
     Route: 048
  2. CLOBETASOL [Suspect]
     Active Substance: CLOBETASOL
     Indication: Benign familial pemphigus
  3. BETAMETHASONE [Concomitant]
     Active Substance: BETAMETHASONE
     Indication: Benign familial pemphigus
  4. BETAMETHASONE DIPROPIONATE\CALCIPOTRIENE MONOHYDRATE [Concomitant]
     Active Substance: BETAMETHASONE DIPROPIONATE\CALCIPOTRIENE MONOHYDRATE
     Indication: Benign familial pemphigus
  5. APREMILAST [Concomitant]
     Active Substance: APREMILAST
     Indication: Product used for unknown indication
  6. BETAMETHASONE [Concomitant]
     Active Substance: BETAMETHASONE
     Indication: Benign familial pemphigus
  7. BETAMETHASONE [Concomitant]
     Active Substance: BETAMETHASONE
     Indication: Steroid withdrawal syndrome
  8. HYDROCORTISONE [Suspect]
     Active Substance: HYDROCORTISONE
     Indication: Steroid withdrawal syndrome
     Route: 048
  9. HYDROCORTISONE [Suspect]
     Active Substance: HYDROCORTISONE
     Indication: Steroid withdrawal syndrome
     Route: 048
  10. BETAMETHASONE [Concomitant]
     Active Substance: BETAMETHASONE
     Indication: Steroid withdrawal syndrome

REACTIONS (11)
  - Nephrolithiasis [Unknown]
  - Cushing^s syndrome [Unknown]
  - Osteoporotic fracture [Unknown]
  - Adrenal insufficiency [Unknown]
  - Psychiatric symptom [Unknown]
  - Oral candidiasis [Unknown]
  - Insomnia [Recovering/Resolving]
  - Glucose tolerance impaired [Unknown]
  - Conjunctival hyperaemia [Unknown]
  - Hypothalamic pituitary adrenal axis suppression [Unknown]
  - Drug ineffective [Unknown]
